FAERS Safety Report 14877615 (Version 3)
Quarter: 2018Q2

REPORT INFORMATION
  Report Type: Spontaneous
  Country: DE (occurrence: DE)
  Receive Date: 20180510
  Receipt Date: 20180524
  Transmission Date: 20180711
  Serious: Yes (Other)
  Sender: FDA-Public Use
  Company Number: DE-BAUSCH-BL-2018-013817

PATIENT
  Age: 13 Year
  Sex: Female

DRUGS (5)
  1. RIBAVIRIN. [Suspect]
     Active Substance: RIBAVIRIN
     Dosage: DOSE: 2 X 200 MG = 10 MG/KG OF BODY WEIGHT PER DAY
     Route: 065
  2. RIBAVIRIN. [Suspect]
     Active Substance: RIBAVIRIN
     Dosage: DOSE: REDUCED DOSE OF 200 MG DAILY (5 MG/KG) AFTER 10 WEEKS
     Route: 065
  3. RIBAVIRIN. [Suspect]
     Active Substance: RIBAVIRIN
     Indication: HEPATITIS E
     Route: 065
  4. RIBAVIRIN. [Suspect]
     Active Substance: RIBAVIRIN
     Route: 065
  5. RIBAVIRIN. [Suspect]
     Active Substance: RIBAVIRIN
     Route: 065

REACTIONS (1)
  - Aplastic anaemia [Unknown]
